FAERS Safety Report 9207941 (Version 1)
Quarter: 2013Q2

REPORT INFORMATION
  Report Type: Spontaneous
  Country: US (occurrence: US)
  Receive Date: 20130403
  Receipt Date: 20130403
  Transmission Date: 20140414
  Serious: Yes (Other)
  Sender: FDA-Public Use
  Company Number: US-ELI_LILLY_AND_COMPANY-US201304000102

PATIENT
  Sex: Male

DRUGS (3)
  1. EFFIENT [Suspect]
     Indication: PERCUTANEOUS CORONARY INTERVENTION
     Dosage: 10 MG, UNKNOWN
     Route: 048
     Dates: end: 20130327
  2. XARELTO [Concomitant]
     Indication: PULMONARY EMBOLISM
     Dosage: 20 MG, UNKNOWN
  3. ASPIRIN [Concomitant]
     Indication: PERCUTANEOUS CORONARY INTERVENTION
     Dosage: 81 MG, UNKNOWN

REACTIONS (3)
  - Hypochromic anaemia [Unknown]
  - Haemorrhage [Unknown]
  - Faeces discoloured [Unknown]
